FAERS Safety Report 5592996-X (Version None)
Quarter: 2008Q1

REPORT INFORMATION
  Report Type: 
  Country: None (occurrence: None)
  Receive Date: 20080114
  Receipt Date: 20080103
  Transmission Date: 20080703
  Serious: Yes (Other)
  Sender: FDA-Public Use
  Company Number: 2008SP000228

PATIENT
  Age: 49 Year
  Sex: Male

DRUGS (2)
  1. PEG-INTRON [Suspect]
     Indication: HEPATITIS C
     Dosage: SC
     Route: 058
     Dates: start: 20071019
  2. RIBAVIRIN [Suspect]
     Indication: HEPATITIS C
     Dosage: PO
     Route: 048
     Dates: start: 20071019

REACTIONS (12)
  - BLOOD COUNT ABNORMAL [None]
  - DEHYDRATION [None]
  - DISTURBANCE IN ATTENTION [None]
  - DRUG INEFFECTIVE [None]
  - GASTROINTESTINAL SOUNDS ABNORMAL [None]
  - HAEMATEMESIS [None]
  - HAEMATOCHEZIA [None]
  - MALAISE [None]
  - MOVEMENT DISORDER [None]
  - NAUSEA [None]
  - THINKING ABNORMAL [None]
  - VOMITING [None]
